FAERS Safety Report 7406076-1 (Version None)
Quarter: 2011Q2

REPORT INFORMATION
  Report Type: 
  Country: None (occurrence: None)
  Receive Date: 20110411
  Receipt Date: 20110404
  Transmission Date: 20111010
  Serious: Yes (Hospitalization)
  Sender: FDA-Public Use
  Company Number: D0070897A

PATIENT
  Sex: Male

DRUGS (1)
  1. ZOVIRAX [Suspect]
     Dosage: 400MG THREE TIMES PER DAY
     Route: 048
     Dates: start: 20110301, end: 20110304

REACTIONS (4)
  - RASH [None]
  - HYPERSENSITIVITY [None]
  - NAUSEA [None]
  - CHEST DISCOMFORT [None]
